FAERS Safety Report 4669924-4 (Version None)
Quarter: 2005Q2

REPORT INFORMATION
  Report Type: 
  Country: None (occurrence: None)
  Receive Date: 20050523
  Receipt Date: 20050509
  Transmission Date: 20051028
  Serious: No
  Sender: FDA-Public Use
  Company Number: PHEH2005US05277

PATIENT
  Age: 70 Year
  Sex: Female

DRUGS (4)
  1. TRIAMCINOLONE [Concomitant]
     Indication: ECZEMA
     Dates: start: 20030101
  2. BETAMETHASONE [Concomitant]
     Indication: ECZEMA
  3. COAL TAR [Concomitant]
     Indication: ECZEMA
  4. ELIDEL [Suspect]
     Indication: ECZEMA
     Dosage: UNK, BID
     Route: 061
     Dates: start: 20050101, end: 20050401

REACTIONS (1)
  - DRUG INEFFECTIVE [None]
